FAERS Safety Report 12784259 (Version 3)
Quarter: 2016Q4

REPORT INFORMATION
  Report Type: Spontaneous
  Country: US (occurrence: US)
  Receive Date: 20160927
  Receipt Date: 20161221
  Transmission Date: 20170207
  Serious: Yes (Hospitalization)
  Sender: FDA-Public Use
  Company Number: US-JNJFOC-20160921466

PATIENT
  Age: 56 Year
  Sex: Female
  Weight: 93 kg

DRUGS (11)
  1. LEVOTHROID [Concomitant]
     Active Substance: LEVOTHYROXINE SODIUM
     Dosage: 25 MCG HALF EVERY MORNING ALONG WITH 150 MCG FOR A TOTAL DOSE OF 162.5 MCG
     Route: 048
  2. PRINIVIL [Concomitant]
     Active Substance: LISINOPRIL
     Route: 048
  3. SINGULAIR [Concomitant]
     Active Substance: MONTELUKAST SODIUM
     Route: 048
  4. REMICADE [Suspect]
     Active Substance: INFLIXIMAB
     Indication: CROHN^S DISEASE
     Route: 042
  5. SYNTHROID [Concomitant]
     Active Substance: LEVOTHYROXINE SODIUM
     Dosage: EVERY MORNING BEFORE BREAKFAST
     Route: 048
  6. SYMBICORT [Concomitant]
     Active Substance: BUDESONIDE\FORMOTEROL FUMARATE DIHYDRATE
     Route: 055
  7. REGLAN [Concomitant]
     Active Substance: METOCLOPRAMIDE HYDROCHLORIDE
     Indication: NAUSEA
     Route: 048
  8. LOPRESSOR [Concomitant]
     Active Substance: METOPROLOL TARTRATE
     Route: 048
  9. PROTONIX [Concomitant]
     Active Substance: PANTOPRAZOLE SODIUM
     Route: 048
  10. LOTRIMIN [Concomitant]
     Active Substance: CLOTRIMAZOLE
     Route: 061
  11. NOVOLOG [Concomitant]
     Active Substance: INSULIN ASPART
     Dosage: 100 UNITS/ML

REACTIONS (13)
  - Cellulitis [Unknown]
  - Pneumonia [Recovering/Resolving]
  - Anal fistula [Unknown]
  - Musculoskeletal chest pain [Recovered/Resolved]
  - Skin disorder [Unknown]
  - Bacteraemia [Unknown]
  - Deep vein thrombosis [Recovered/Resolved]
  - Blood urine present [Unknown]
  - Urinary tract infection [Recovering/Resolving]
  - Crohn^s disease [Unknown]
  - Rectal haemorrhage [Unknown]
  - Gastrointestinal stoma complication [Unknown]
  - Fistula [Unknown]

NARRATIVE: CASE EVENT DATE: 20160814
